FAERS Safety Report 5299250-4 (Version None)
Quarter: 2007Q2

REPORT INFORMATION
  Report Type: 
  Country: None (occurrence: None)
  Receive Date: 20070417
  Receipt Date: 20070403
  Transmission Date: 20071010
  Serious: Yes (Other)
  Sender: FDA-Public Use
  Company Number: PHRM2007FR01203

PATIENT
  Age: 77 Year
  Sex: Female

DRUGS (3)
  1. LAMALINE [Suspect]
     Dosage: 1 DF, ONCE/SINGLE
     Route: 054
     Dates: start: 20070324, end: 20070324
  2. DI-ANTALVIC [Suspect]
  3. GLEEVEC [Suspect]
     Indication: CHRONIC MYELOID LEUKAEMIA
     Dosage: 300 MG DAILY
     Route: 048
     Dates: start: 20010901

REACTIONS (10)
  - ANXIETY [None]
  - CYSTITIS [None]
  - DRUG INTERACTION [None]
  - DYSPNOEA [None]
  - EYE PAIN [None]
  - FALL [None]
  - HYPERTHERMIA [None]
  - HYPERTHYROIDISM [None]
  - LOSS OF CONSCIOUSNESS [None]
  - RENAL COLIC [None]
